FAERS Safety Report 12728152 (Version 1)
Quarter: 2016Q3

REPORT INFORMATION
  Report Type: Spontaneous
  Country: US (occurrence: US)
  Receive Date: 20160909
  Receipt Date: 20160909
  Transmission Date: 20161109
  Serious: No
  Sender: FDA-Public Use
  Company Number: US-BECTON DICKINSON-2015BDN00005

PATIENT
  Sex: Female

DRUGS (1)
  1. CHLORAPREP ONE-STEP SEPP [Suspect]
     Active Substance: CHLORHEXIDINE GLUCONATE\ISOPROPYL ALCOHOL
     Dosage: UNK
     Dates: start: 20151222, end: 20151222

REACTIONS (2)
  - Injury associated with device [None]
  - Wound [Unknown]

NARRATIVE: CASE EVENT DATE: 20151222
